FAERS Safety Report 18954823 (Version 1)
Quarter: 2021Q1

REPORT INFORMATION
  Report Type: Report from Study
  Country: GB (occurrence: GB)
  Receive Date: 20210301
  Receipt Date: 20210301
  Transmission Date: 20210420
  Serious: Yes (Death)
  Sender: FDA-Public Use
  Company Number: GB-PFIZER INC-2020061913

PATIENT
  Age: 62 Year
  Sex: Female

DRUGS (62)
  1. OMEPRAZOLE. [Concomitant]
     Active Substance: OMEPRAZOLE
     Dosage: 20 MG, DAILY
     Route: 048
     Dates: start: 20190329
  2. GRANISETRON [Concomitant]
     Active Substance: GRANISETRON
     Dosage: 1 MG, EVERY 3 WEEKS
     Route: 042
     Dates: start: 20190716
  3. MORPHINE SULPHATE [Concomitant]
     Active Substance: MORPHINE SULFATE
     Dosage: 10 MG, 2X/DAY
     Route: 048
     Dates: start: 20191003, end: 20191003
  4. MORPHINE SULPHATE [Concomitant]
     Active Substance: MORPHINE SULFATE
     Dosage: 20 MG, 2X/DAY
     Route: 048
     Dates: start: 20191002, end: 20191003
  5. MACROGOL [Concomitant]
     Active Substance: POLYETHYLENE GLYCOLS
     Dosage: 0.5 DAY, SACHETS
     Route: 048
     Dates: start: 20200303, end: 20200331
  6. TAZOCIN [Concomitant]
     Active Substance: PIPERACILLIN SODIUM\TAZOBACTAM SODIUM
     Dosage: 4.5 G, 3X/DAY
     Route: 042
     Dates: start: 20191005, end: 20191007
  7. SENNA ALEXANDRINA [Concomitant]
     Active Substance: SENNA LEAF
     Indication: CONSTIPATION
     Dosage: 1 MG, UNK
     Route: 048
     Dates: start: 20190629, end: 20190629
  8. DALTEPARIN [Concomitant]
     Active Substance: DALTEPARIN
     Dosage: 5000 IU, UNK
     Route: 058
     Dates: start: 20180626, end: 20180628
  9. LEVOFLOXACIN. [Concomitant]
     Active Substance: LEVOFLOXACIN
     Dosage: 500 MG, DAILY
     Route: 048
     Dates: start: 20191008, end: 20191014
  10. FENTANYL. [Concomitant]
     Active Substance: FENTANYL
     Dosage: FREQ:.33 D;
     Route: 062
     Dates: start: 201911, end: 20200504
  11. DEXAMETHASONE. [Concomitant]
     Active Substance: DEXAMETHASONE
     Indication: URINARY INCONTINENCE
     Dosage: 8 MG, EVERY 3 WEEKS
     Route: 042
     Dates: start: 20190716
  12. DEXAMETHASONE. [Concomitant]
     Active Substance: DEXAMETHASONE
     Indication: ASTHENIA
  13. ADCAL D3 [Concomitant]
     Active Substance: CALCIUM CARBONATE\CHOLECALCIFEROL
     Indication: PROPHYLAXIS
     Dosage: 1 DF, 1X/DAY
     Route: 048
     Dates: start: 20171120
  14. ORAMORPH SR SUSTAINED RELEASE [Concomitant]
     Active Substance: MORPHINE SULFATE
     Dosage: 10 MG, UNK
     Route: 048
     Dates: start: 20190929, end: 20191003
  15. MORPHINE SULPHATE [Concomitant]
     Active Substance: MORPHINE SULFATE
     Dosage: 30 MG, 2X/DAY
     Route: 048
     Dates: start: 20190930, end: 20191002
  16. IRON SUCROSE [Concomitant]
     Active Substance: IRON SUCROSE
     Indication: ANAEMIA
     Dosage: 200 MG, 1X/DAY
     Route: 042
     Dates: start: 20200313, end: 20200326
  17. BISACODYL. [Concomitant]
     Active Substance: BISACODYL
     Indication: CONSTIPATION
     Dosage: 10 MG
     Route: 054
     Dates: start: 20200315, end: 20200315
  18. SODIUM CITRATE. [Concomitant]
     Active Substance: SODIUM CITRATE
     Indication: CONSTIPATION
     Dosage: RECTUM
     Dates: start: 20200315, end: 20200315
  19. TRASTUZUMAB. [Suspect]
     Active Substance: TRASTUZUMAB
     Indication: BREAST CANCER
     Dosage: LOADING DOSE
     Route: 042
     Dates: start: 20171120, end: 20171120
  20. IBUPROFEN. [Concomitant]
     Active Substance: IBUPROFEN
     Dosage: 400 MG, 3X/DAY
     Route: 048
     Dates: start: 20190930
  21. OXYGEN. [Concomitant]
     Active Substance: OXYGEN
     Dosage: UNK
     Route: 055
     Dates: start: 20190628, end: 20190701
  22. OXYCODONE [Concomitant]
     Active Substance: OXYCODONE
     Dosage: 2.5 MG, UNK
     Route: 048
     Dates: start: 20191003
  23. PARACETAMOL [Concomitant]
     Active Substance: ACETAMINOPHEN
     Indication: PAIN IN EXTREMITY
     Dosage: 1 G, 4X/DAY
     Route: 048
     Dates: start: 20190930
  24. PARACETAMOL [Concomitant]
     Active Substance: ACETAMINOPHEN
     Dosage: 1 G, UNK
     Route: 048
     Dates: start: 20180624, end: 20180704
  25. SENNA ALEXANDRINA [Concomitant]
     Active Substance: SENNA LEAF
     Dosage: 15 MG, DAILY
     Route: 048
     Dates: start: 20191001, end: 201910
  26. TRASTUZUMAB. [Suspect]
     Active Substance: TRASTUZUMAB
     Dosage: 200 MG, UNK, OTHER CHEMOTHERAPY
     Route: 042
     Dates: start: 20190716
  27. PERTUZUMAB. [Suspect]
     Active Substance: PERTUZUMAB
     Dosage: 420 MG, EVERY 3 WEEKS
     Route: 042
     Dates: start: 20171211, end: 20190329
  28. DENOSUMAB [Suspect]
     Active Substance: DENOSUMAB
     Indication: PROPHYLAXIS
     Dosage: 120 MG, EVERY 4 WEEKS
     Route: 058
     Dates: start: 20171020
  29. DEXAMETHASONE. [Concomitant]
     Active Substance: DEXAMETHASONE
     Indication: HEMIPARESIS
  30. DEXAMETHASONE. [Concomitant]
     Active Substance: DEXAMETHASONE
     Indication: PAIN
  31. GLYCERINE [Concomitant]
     Active Substance: GLYCERIN
     Indication: CONSTIPATION
     Dosage: RECTUM
     Dates: start: 20200315, end: 20200315
  32. TRASTUZUMAB. [Suspect]
     Active Substance: TRASTUZUMAB
     Dosage: 515 MG, EVERY 4 WEEKS
     Route: 042
     Dates: start: 20171211, end: 20190329
  33. DEXAMETHASONE. [Concomitant]
     Active Substance: DEXAMETHASONE
     Indication: HEMIPARESIS
     Dosage: 2 MG, 1X/DAY
     Route: 048
     Dates: start: 20190805
  34. DEXAMETHASONE. [Concomitant]
     Active Substance: DEXAMETHASONE
     Indication: PAIN
     Dosage: FREQ:.5 D;
     Route: 048
     Dates: start: 20190329
  35. DEXAMETHASONE. [Concomitant]
     Active Substance: DEXAMETHASONE
     Indication: AMNESIA
  36. DEXAMETHASONE. [Concomitant]
     Active Substance: DEXAMETHASONE
     Indication: AMNESIA
  37. ORAMORPH SR SUSTAINED RELEASE [Concomitant]
     Active Substance: MORPHINE SULFATE
     Dosage: FREQ:.5 D;
     Route: 048
     Dates: start: 201912, end: 20200401
  38. DOCUSATE SODIUM. [Concomitant]
     Active Substance: DOCUSATE SODIUM
     Indication: CONSTIPATION
     Dosage: 100 MG, 3X/DAY
     Route: 048
     Dates: start: 20191003
  39. OXYCODONE [Concomitant]
     Active Substance: OXYCODONE
     Dosage: 10 MG, 2X/DAY
     Route: 048
     Dates: start: 20191003
  40. METOCLOPRAMIDE. [Concomitant]
     Active Substance: METOCLOPRAMIDE
     Dosage: 10 MG, UNK
     Route: 048
     Dates: start: 20190716
  41. DALTEPARIN [Concomitant]
     Active Substance: DALTEPARIN
     Dosage: 15000 U
     Route: 058
     Dates: start: 20190628, end: 20190628
  42. GENTAMICIN. [Concomitant]
     Active Substance: GENTAMICIN
     Dosage: 120 MG
     Route: 042
     Dates: start: 20200310, end: 20200310
  43. DOCETAXEL. [Suspect]
     Active Substance: DOCETAXEL
     Indication: BREAST CANCER
     Dosage: 200 MG, UNK
     Route: 042
     Dates: start: 20171120, end: 20180101
  44. TRASTUZUMAB EMTANSINE [Suspect]
     Active Substance: ADO-TRASTUZUMAB EMTANSINE
     Indication: BREAST CANCER
     Dosage: 260 MG, UNK
     Route: 042
     Dates: start: 20190814, end: 20190903
  45. TRASTUZUMAB EMTANSINE [Suspect]
     Active Substance: ADO-TRASTUZUMAB EMTANSINE
     Dosage: 200 MG, EVERY 3 WEEKS
     Route: 042
     Dates: start: 20190904
  46. LORAZEPAM. [Concomitant]
     Active Substance: LORAZEPAM
     Indication: ANXIETY
     Dosage: 1 MG, 1X/DAY
     Route: 048
     Dates: start: 20190629, end: 20190629
  47. MACROGOL [Concomitant]
     Active Substance: POLYETHYLENE GLYCOLS
     Indication: CONSTIPATION
     Dosage: SACHET
     Route: 048
     Dates: start: 20190630, end: 20190630
  48. MACROGOL [Concomitant]
     Active Substance: POLYETHYLENE GLYCOLS
     Dosage: SACHET
     Route: 048
     Dates: start: 20191003, end: 201910
  49. DALTEPARIN [Concomitant]
     Active Substance: DALTEPARIN
     Indication: PROPHYLAXIS
     Dosage: 1500 IU, DAILY
     Route: 058
     Dates: start: 20190802
  50. DOCETAXEL. [Suspect]
     Active Substance: DOCETAXEL
     Dosage: 180 MG, EVERY 3 WEEKS
     Route: 042
     Dates: start: 20180122
  51. PERTUZUMAB. [Suspect]
     Active Substance: PERTUZUMAB
     Indication: BREAST CANCER
     Dosage: LOADING DOSE
     Route: 042
     Dates: start: 20171120, end: 20171120
  52. TRASTUZUMAB EMTANSINE [Suspect]
     Active Substance: ADO-TRASTUZUMAB EMTANSINE
     Dosage: 300 MG, EVERY 3 WEEKS
     Route: 042
     Dates: start: 20190716, end: 20190813
  53. DEXAMETHASONE. [Concomitant]
     Active Substance: DEXAMETHASONE
     Indication: AMNESIA
     Dosage: 8 MG
     Route: 042
     Dates: start: 20200310, end: 20200310
  54. PREGABALIN. [Concomitant]
     Active Substance: PREGABALIN
     Dosage: 75 MG, 2X/DAY
     Route: 048
     Dates: start: 20190930
  55. LEVOBUPIVACAINE [Concomitant]
     Active Substance: LEVOBUPIVACAINE
     Indication: PAIN IN EXTREMITY
     Dosage: HOURLY
     Route: 058
     Dates: start: 20200304, end: 20200331
  56. DIHYDROCODEINE [Concomitant]
     Active Substance: DIHYDROCODEINE
     Indication: PAIN IN EXTREMITY
     Dosage: FREQ:4 D;
     Route: 048
     Dates: start: 20200303, end: 20200331
  57. TRANEXAMIC ACID. [Concomitant]
     Active Substance: TRANEXAMIC ACID
     Dosage: 1 G
     Route: 042
     Dates: start: 20200310, end: 20200310
  58. DEXAMETHASONE. [Concomitant]
     Active Substance: DEXAMETHASONE
     Indication: URINARY INCONTINENCE
     Dosage: 4 MG, 1X/DAY
     Route: 048
     Dates: start: 20190412
  59. ZERODERM [Concomitant]
     Indication: ERYTHEMA
     Dosage: 1 MG, 1X/DAY
     Route: 061
     Dates: start: 20181012
  60. DALTEPARIN [Concomitant]
     Active Substance: DALTEPARIN
     Dosage: DAILY (1800U)
     Route: 058
     Dates: start: 20190701
  61. DALTEPARIN [Concomitant]
     Active Substance: DALTEPARIN
     Dosage: 5000 IU, 1X/DAY
     Route: 058
     Dates: start: 20180623, end: 20180624
  62. DALTEPARIN [Concomitant]
     Active Substance: DALTEPARIN
     Dosage: 5000 IU
     Route: 058
     Dates: start: 20200303, end: 20200331

REACTIONS (3)
  - Pneumonia [Fatal]
  - Fatigue [Not Recovered/Not Resolved]
  - Off label use [Unknown]

NARRATIVE: CASE EVENT DATE: 20171120
